FAERS Safety Report 17941054 (Version 1)
Quarter: 2020Q2

REPORT INFORMATION
  Report Type: Spontaneous
  Country: US (occurrence: US)
  Receive Date: 20200625
  Receipt Date: 20200625
  Transmission Date: 20200714
  Serious: No
  Sender: FDA-Public Use
  Company Number: US-SA-2020SA154947

PATIENT

DRUGS (1)
  1. CABLIVI [Suspect]
     Active Substance: CAPLACIZUMAB-YHDP
     Indication: THROMBOTIC MICROANGIOPATHY
     Dosage: 11 MG, QD
     Route: 058
     Dates: start: 20200524

REACTIONS (10)
  - Confusional state [Unknown]
  - Haemoglobin decreased [Not Recovered/Not Resolved]
  - Condition aggravated [Unknown]
  - Weight increased [Unknown]
  - Haematocrit decreased [Not Recovered/Not Resolved]
  - Fatigue [Unknown]
  - Memory impairment [Unknown]
  - Dry skin [Unknown]
  - Thirst [Unknown]
  - Hypoaesthesia [Unknown]
